FAERS Safety Report 7147918-7 (Version None)
Quarter: 2010Q4

REPORT INFORMATION
  Report Type: 
  Country: None (occurrence: None)
  Receive Date: 20101209
  Receipt Date: 20101130
  Transmission Date: 20110411
  Serious: Yes (Hospitalization, Other)
  Sender: FDA-Public Use
  Company Number: DE-JNJFOC-20101108827

PATIENT
  Age: 38 Year
  Sex: Male

DRUGS (4)
  1. TOPAMAX [Suspect]
     Indication: EPILEPSY
     Route: 048
  2. TOPAMAX [Suspect]
     Route: 048
  3. TIMONIL [Concomitant]
     Indication: EPILEPSY
     Route: 048
  4. PHENOBARBITAL [Concomitant]
     Indication: EPILEPSY
     Route: 048

REACTIONS (6)
  - ASTHENIA [None]
  - BLOOD CHLORIDE INCREASED [None]
  - ELECTROLYTE IMBALANCE [None]
  - HYPERNATRAEMIA [None]
  - HYPOKALAEMIA [None]
  - RESTLESSNESS [None]
